FAERS Safety Report 19774357 (Version 1)
Quarter: 2021Q3

REPORT INFORMATION
  Report Type: Other
  Country: US (occurrence: US)
  Receive Date: 20210901
  Receipt Date: 20210901
  Transmission Date: 20211014
  Serious: Yes (Life-Threatening, Hospitalization, Other)
  Sender: FDA-Public Use
  Company Number: US-ROCHE-2896857

PATIENT
  Age: 50 Year
  Sex: Female
  Weight: 85.35 kg

DRUGS (2)
  1. OCREVUS [Suspect]
     Active Substance: OCRELIZUMAB
     Indication: MULTIPLE SCLEROSIS
     Dosage: (PRESCRIBED AS 300 MG ON DAY 1 AND DAY 6 AND 600 MG ONCE IN 6 MONTHS)
     Route: 042
     Dates: start: 20180702, end: 20180702
  2. VANCOMYCIN [Concomitant]
     Active Substance: VANCOMYCIN
     Indication: CYSTITIS
     Route: 048
     Dates: start: 2019

REACTIONS (9)
  - Immunodeficiency [Not Recovered/Not Resolved]
  - Immunoglobulins decreased [Not Recovered/Not Resolved]
  - Cystitis [Recovered/Resolved]
  - Pneumonia [Recovered/Resolved]
  - Clostridium difficile infection [Not Recovered/Not Resolved]
  - COVID-19 [Recovered/Resolved]
  - B-lymphocyte count decreased [Unknown]
  - Respiratory tract infection [Recovered/Resolved]
  - Sepsis [Recovered/Resolved]

NARRATIVE: CASE EVENT DATE: 202008
